FAERS Safety Report 8618158-7 (Version None)
Quarter: 2012Q3

REPORT INFORMATION
  Report Type: 
  Country: None (occurrence: None)
  Receive Date: 20120824
  Receipt Date: 20120314
  Transmission Date: 20120928
  Serious: Yes (Other)
  Sender: FDA-Public Use
  Company Number: US-ASTRAZENECA-2012SE17878

PATIENT
  Age: 52 Year
  Sex: Female
  Weight: 83.5 kg

DRUGS (3)
  1. SYMBICORT [Suspect]
     Dosage: 160/4.5 MCG, UNKNOWN
     Route: 055
  2. PROVENTIL-HFA [Concomitant]
     Dosage: 90 MCG/ACTUATION
     Route: 055
  3. SINGULAIR [Concomitant]
     Route: 048

REACTIONS (19)
  - CONVULSION [None]
  - DYSPNOEA [None]
  - FATIGUE [None]
  - HISTOPLASMOSIS [None]
  - DYSPNOEA PAROXYSMAL NOCTURNAL [None]
  - INTERVERTEBRAL DISC DEGENERATION [None]
  - SPONDYLOLISTHESIS [None]
  - BLOOD PRESSURE INCREASED [None]
  - PALATAL DISORDER [None]
  - CHEST PAIN [None]
  - CARPAL TUNNEL SYNDROME [None]
  - ANXIETY [None]
  - HYPERLIPIDAEMIA [None]
  - PNEUMONIA [None]
  - CHEST DISCOMFORT [None]
  - COUGH [None]
  - CHRONIC OBSTRUCTIVE PULMONARY DISEASE [None]
  - HYPERHIDROSIS [None]
  - WHEEZING [None]
